FAERS Safety Report 16529901 (Version 1)
Quarter: 2019Q3

REPORT INFORMATION
  Report Type: Spontaneous
  Country: FR (occurrence: FR)
  Receive Date: 20190704
  Receipt Date: 20190704
  Transmission Date: 20191004
  Serious: Yes (Hospitalization)
  Sender: FDA-Public Use
  Company Number: FR-STRIDES ARCOLAB LIMITED-2019SP005572

PATIENT
  Age: 53 Year
  Sex: Male

DRUGS (1)
  1. IBUPROFEN. [Suspect]
     Active Substance: IBUPROFEN
     Indication: PRODUCT USED FOR UNKNOWN INDICATION
     Dosage: UNK
     Route: 065

REACTIONS (20)
  - Self-medication [Unknown]
  - Metabolic acidosis [Unknown]
  - Pneumonia [Unknown]
  - Anuria [Recovered/Resolved]
  - Necrosis [Unknown]
  - Haemolytic uraemic syndrome [Unknown]
  - Acute kidney injury [Recovered/Resolved]
  - Livedo reticularis [Unknown]
  - Depressed level of consciousness [Unknown]
  - Anaemia [Unknown]
  - Leukocytosis [Unknown]
  - Myocarditis [Unknown]
  - Pyrexia [Unknown]
  - Thrombotic microangiopathy [Unknown]
  - Hyperlactacidaemia [Unknown]
  - Respiratory distress [Unknown]
  - Purpura [Unknown]
  - Pneumococcal infection [Unknown]
  - Confusional state [Recovered/Resolved]
  - Skin lesion [Recovered/Resolved]
